FAERS Safety Report 11347118 (Version 1)
Quarter: 2015Q3

REPORT INFORMATION
  Report Type: Spontaneous
  Country: US (occurrence: US)
  Receive Date: 20150803
  Receipt Date: 20150803
  Transmission Date: 20151125
  Serious: No
  Sender: FDA-Public Use
  Company Number: US-ELI_LILLY_AND_COMPANY-US201103003938

PATIENT
  Sex: Male

DRUGS (18)
  1. ZYPREXA [Suspect]
     Active Substance: OLANZAPINE
     Dosage: 15 MG, BID
  2. LAMICTAL [Concomitant]
     Active Substance: LAMOTRIGINE
  3. XANAX [Concomitant]
     Active Substance: ALPRAZOLAM
  4. ZYPREXA [Suspect]
     Active Substance: OLANZAPINE
     Indication: BIPOLAR DISORDER
     Dosage: 5 MG, QD
     Dates: start: 1996
  5. ZYPREXA [Suspect]
     Active Substance: OLANZAPINE
     Dosage: 45 MG, QD
  6. ELAVIL [Concomitant]
     Active Substance: AMITRIPTYLINE HYDROCHLORIDE
  7. ZYPREXA [Suspect]
     Active Substance: OLANZAPINE
     Dosage: 20 MG, QD
  8. ZYPREXA [Suspect]
     Active Substance: OLANZAPINE
     Dosage: 60 MG, QD
  9. ZYPREXA [Suspect]
     Active Substance: OLANZAPINE
     Dosage: UNK
     Dates: end: 201002
  10. ZYPREXA [Suspect]
     Active Substance: OLANZAPINE
     Dosage: 10 MG, QD
  11. ZYPREXA [Suspect]
     Active Substance: OLANZAPINE
     Dosage: 15 MG, QD
  12. ZYPREXA [Suspect]
     Active Substance: OLANZAPINE
     Dosage: 80 MG, QD
  13. ZYPREXA [Suspect]
     Active Substance: OLANZAPINE
     Dosage: UNK
     Dates: start: 201010
  14. LITHIUM. [Concomitant]
     Active Substance: LITHIUM
  15. TRILAFON [Concomitant]
     Active Substance: PERPHENAZINE
  16. DEPAKOTE ER [Concomitant]
     Active Substance: DIVALPROEX SODIUM
  17. ZYPREXA [Suspect]
     Active Substance: OLANZAPINE
     Dosage: 10 MG, QD
  18. ZYPREXA [Suspect]
     Active Substance: OLANZAPINE
     Dosage: 30 MG, QD

REACTIONS (10)
  - Weight increased [Unknown]
  - Appetite disorder [Unknown]
  - Medication error [Unknown]
  - Prescribed overdose [Not Recovered/Not Resolved]
  - Depression [Not Recovered/Not Resolved]
  - Nervousness [Unknown]
  - Fear [Unknown]
  - Insomnia [Unknown]
  - Hypersomnia [Unknown]
  - Drug interaction [Unknown]
